FAERS Safety Report 5345353-5 (Version None)
Quarter: 2007Q2

REPORT INFORMATION
  Report Type: 
  Country: None (occurrence: None)
  Receive Date: 20070601
  Receipt Date: 20070519
  Transmission Date: 20071010
  Serious: Yes (Hospitalization)
  Sender: FDA-Public Use
  Company Number: PIR # 0705038

PATIENT
  Age: 59 Year
  Sex: Male

DRUGS (2)
  1. HESPAN 6% B. BRAUN MEDICAL [Suspect]
     Indication: DRUG THERAPY
  2. HESPAN 6% B. BRAUN MEDICAL [Suspect]
     Indication: THERAPEUTIC PROCEDURE

REACTIONS (10)
  - BLOOD CREATININE INCREASED [None]
  - BLOOD POTASSIUM INCREASED [None]
  - COMPLICATIONS OF TRANSPLANTED KIDNEY [None]
  - HAEMODIALYSIS [None]
  - IMMUNOLOGY TEST ABNORMAL [None]
  - INTERCAPILLARY GLOMERULOSCLEROSIS [None]
  - KIDNEY FIBROSIS [None]
  - NEPHROTIC SYNDROME [None]
  - RENAL ARTERIOSCLEROSIS [None]
  - RENAL TUBULAR ATROPHY [None]
